FAERS Safety Report 21831754 (Version 1)
Quarter: 2023Q1

REPORT INFORMATION
  Report Type: Spontaneous
  Country: US (occurrence: None)
  Receive Date: 20230106
  Receipt Date: 20230106
  Transmission Date: 20230417
  Serious: No
  Sender: FDA-Public Use
  Company Number: None

PATIENT
  Sex: 0

DRUGS (9)
  1. FOCALIN [Suspect]
     Active Substance: DEXMETHYLPHENIDATE HYDROCHLORIDE
  2. BUSPIRONE HYDROCHLORIDE [Suspect]
     Active Substance: BUSPIRONE HYDROCHLORIDE
  3. DEPAKOTE [Suspect]
     Active Substance: DIVALPROEX SODIUM
  4. LEXAPRO [Suspect]
     Active Substance: ESCITALOPRAM OXALATE
  5. MELATONIN [Suspect]
     Active Substance: MELATONIN
  6. ZYPREXA [Suspect]
     Active Substance: OLANZAPINE
  7. QUETIAPINE FUMARATE [Suspect]
     Active Substance: QUETIAPINE FUMARATE
  8. DEXMETHYLPHENIDATE [Suspect]
     Active Substance: DEXMETHYLPHENIDATE
  9. FOCALIN XR [Suspect]
     Active Substance: DEXMETHYLPHENIDATE HYDROCHLORIDE

REACTIONS (6)
  - Homicidal ideation [None]
  - Aggression [None]
  - Anxiety disorder [None]
  - Intellectual disability [None]
  - Attention deficit hyperactivity disorder [None]
  - Disruptive mood dysregulation disorder [None]
